FAERS Safety Report 20078047 (Version 1)
Quarter: 2021Q4

REPORT INFORMATION
  Report Type: Spontaneous
  Country: US (occurrence: US)
  Receive Date: 20211117
  Receipt Date: 20211117
  Transmission Date: 20220303
  Serious: No
  Sender: FDA-Public Use
  Company Number: US-drreddys-SPO/USA/21/0143530

PATIENT
  Age: 80 Year
  Sex: Female
  Weight: 74.25 kg

DRUGS (1)
  1. SILVER SULFADIAZINE [Suspect]
     Active Substance: SILVER SULFADIAZINE
     Indication: Electrical burn
     Dates: start: 20211031, end: 20211104

REACTIONS (3)
  - Product dose omission issue [Unknown]
  - Therapy interrupted [Unknown]
  - Product use in unapproved indication [Unknown]
